FAERS Safety Report 9313245 (Version 1)
Quarter: 2013Q2

REPORT INFORMATION
  Report Type: Spontaneous
  Country: US (occurrence: US)
  Receive Date: 20130528
  Receipt Date: 20130528
  Transmission Date: 20140414
  Serious: No
  Sender: FDA-Public Use
  Company Number: US-ABBOTT-13P-163-1061890-00

PATIENT
  Age: 61 Year
  Sex: Male
  Weight: 113.5 kg

DRUGS (6)
  1. ANDROGEL [Suspect]
     Indication: BLOOD TESTOSTERONE DECREASED
     Route: 061
     Dates: start: 201207
  2. NOVOLOG [Concomitant]
     Indication: DIABETES MELLITUS
  3. LANTUS [Concomitant]
     Indication: DIABETES MELLITUS
  4. LISINOPRIL [Concomitant]
     Indication: HYPERTENSION
  5. PREGABALIN [Concomitant]
     Indication: DIABETES MELLITUS
  6. ASPIRIN [Concomitant]
     Indication: CARDIAC DISORDER

REACTIONS (3)
  - Drug administered at inappropriate site [Not Recovered/Not Resolved]
  - Drug administered at inappropriate site [Not Recovered/Not Resolved]
  - Erythema [Recovered/Resolved]
